FAERS Safety Report 25122725 (Version 1)
Quarter: 2025Q1

REPORT INFORMATION
  Report Type: Spontaneous
  Country: PL (occurrence: PL)
  Receive Date: 20250326
  Receipt Date: 20250326
  Transmission Date: 20250409
  Serious: Yes (Other)
  Sender: EMD SERONO INC
  Company Number: PL-Merck Healthcare KGaA-2025014317

PATIENT
  Age: 59 Year
  Sex: Male

DRUGS (1)
  1. BAVENCIO [Suspect]
     Active Substance: AVELUMAB
     Indication: Renal cancer metastatic

REACTIONS (5)
  - Neuropathy peripheral [Unknown]
  - Diabetes mellitus [Unknown]
  - Thyroid disorder [Unknown]
  - Disease progression [Unknown]
  - Asthenia [Unknown]
